FAERS Safety Report 25698812 (Version 1)
Quarter: 2025Q3

REPORT INFORMATION
  Report Type: Spontaneous
  Country: CN (occurrence: CN)
  Receive Date: 20250819
  Receipt Date: 20250819
  Transmission Date: 20251020
  Serious: Yes (Hospitalization)
  Sender: BAXTER
  Company Number: None

PATIENT
  Age: 57 Year
  Sex: Female
  Weight: 53 kg

DRUGS (4)
  1. CYCLOPHOSPHAMIDE [Suspect]
     Active Substance: CYCLOPHOSPHAMIDE
     Indication: Nasopharyngeal cancer
     Dosage: 1 G, QD, IVGTT
     Route: 041
     Dates: start: 20250728, end: 20250728
  2. SODIUM CHLORIDE [Suspect]
     Active Substance: SODIUM CHLORIDE
     Dosage: 500 ML, QD (CYCLOPHOSPHAMIDE + 0.9% SODIUM CHLORIDE)
     Route: 041
     Dates: start: 20250728, end: 20250728
  3. DEXTROSE [Suspect]
     Active Substance: DEXTROSE MONOHYDRATE
     Dosage: 250 ML, QD, IVGTT (EPIRUBICIN HYDROCHLORIDE + 5% GLUCOSE)
     Route: 041
     Dates: start: 20250728, end: 20250730
  4. EPIRUBICIN HYDROCHLORIDE [Suspect]
     Active Substance: EPIRUBICIN HYDROCHLORIDE
     Indication: Nasopharyngeal cancer
     Dosage: 50 MG, QD, IVGTT
     Route: 041
     Dates: start: 20250728, end: 20250730

REACTIONS (1)
  - White blood cell count decreased [Unknown]

NARRATIVE: CASE EVENT DATE: 20250810
